FAERS Safety Report 7544124-9 (Version None)
Quarter: 2011Q2

REPORT INFORMATION
  Report Type: 
  Country: None (occurrence: None)
  Receive Date: 20110613
  Receipt Date: 20051208
  Transmission Date: 20111010
  Serious: Yes (Life-Threatening, Hospitalization)
  Sender: FDA-Public Use
  Company Number: PHHO2005VE12773

PATIENT
  Sex: Female

DRUGS (7)
  1. DIOVAN [Suspect]
     Dosage: 40 MG, BID
  2. DIOVAN HCT [Suspect]
     Dosage: 160/12.5 MG
  3. CALCIUM CARBONATE [Concomitant]
  4. ACTONEL [Concomitant]
  5. AMIODARONE HCL [Concomitant]
  6. DIOVAN [Suspect]
     Indication: HYPERTENSION
     Dosage: 160 MG/DAY
  7. LANSOPRAZOLE [Concomitant]

REACTIONS (3)
  - HYPERTENSION [None]
  - OEDEMA PERIPHERAL [None]
  - CEREBROVASCULAR ACCIDENT [None]
